FAERS Safety Report 17711135 (Version 8)
Quarter: 2020Q2

REPORT INFORMATION
  Report Type: Spontaneous
  Country: US (occurrence: US)
  Receive Date: 20200427
  Receipt Date: 20200520
  Transmission Date: 20200714
  Serious: Yes (Other)
  Sender: FDA-Public Use
  Company Number: US-PFIZER INC-2020165969

PATIENT
  Age: 82 Year
  Sex: Female

DRUGS (5)
  1. CELEBREX [Suspect]
     Active Substance: CELECOXIB
     Indication: JOINT SWELLING
  2. COZAAR [Concomitant]
     Active Substance: LOSARTAN POTASSIUM
     Indication: FLUID RETENTION
     Dosage: UNK
  3. CELEBREX [Suspect]
     Active Substance: CELECOXIB
     Indication: BACK PAIN
     Dosage: 400 MG, DAILY
     Route: 048
     Dates: start: 2010
  4. PREMPHASE [Suspect]
     Active Substance: ESTROGENS, CONJUGATED\MEDROXYPROGESTERONE ACETATE
     Indication: FATIGUE
     Dosage: 0.625 MG, DAILY
     Route: 048
  5. COZAAR [Concomitant]
     Active Substance: LOSARTAN POTASSIUM
     Indication: BLOOD PRESSURE ABNORMAL

REACTIONS (12)
  - Eye disorder [Unknown]
  - Sciatica [Unknown]
  - Off label use [Unknown]
  - Drug dependence [Unknown]
  - Limb discomfort [Unknown]
  - Malaise [Unknown]
  - Product use in unapproved indication [Unknown]
  - Arthritis [Unknown]
  - Cardiac disorder [Unknown]
  - Road traffic accident [Unknown]
  - General physical health deterioration [Unknown]
  - Pain [Unknown]
